FAERS Safety Report 10442316 (Version 1)
Quarter: 2014Q3

REPORT INFORMATION
  Report Type: Spontaneous
  Country: DK (occurrence: DK)
  Receive Date: 20140909
  Receipt Date: 20140909
  Transmission Date: 20150326
  Serious: Yes (Other)
  Sender: FDA-Public Use
  Company Number: DK-ACTAVIS-2014-19459

PATIENT
  Age: 51 Year
  Sex: Female
  Weight: 53 kg

DRUGS (3)
  1. VALDOXAN [Suspect]
     Active Substance: AGOMELATINE
     Indication: DEPRESSION
     Dosage: UNK UNK, BID; 50 UNK; BID
     Route: 065
     Dates: start: 20140621
  2. QUETIAPIN ACTAVIS [Suspect]
     Active Substance: QUETIAPINE
     Indication: ANXIETY
     Dosage: 8.3 MG, DAILY; DOSIS: 1/3 TABLET 1 GANG DAGLIG [1/3 OF TABLET DAILY]
     Route: 048
     Dates: start: 20140503
  3. CIRCADIN [Concomitant]
     Active Substance: MELATONIN
     Indication: INSOMNIA
     Dosage: UNK
     Route: 065
     Dates: start: 20140503

REACTIONS (9)
  - Tinnitus [Not Recovered/Not Resolved]
  - Depression [Not Recovered/Not Resolved]
  - Nightmare [Not Recovered/Not Resolved]
  - Somnolence [Not Recovered/Not Resolved]
  - Feeling drunk [Not Recovered/Not Resolved]
  - Anxiety [Not Recovered/Not Resolved]
  - Colour blindness acquired [Not Recovered/Not Resolved]
  - Vision blurred [Not Recovered/Not Resolved]
  - Restlessness [Not Recovered/Not Resolved]

NARRATIVE: CASE EVENT DATE: 20140625
